FAERS Safety Report 5780338-6 (Version None)
Quarter: 2008Q2

REPORT INFORMATION
  Report Type: 
  Country: None (occurrence: None)
  Receive Date: 20080620
  Receipt Date: 20080612
  Transmission Date: 20081010
  Serious: Yes (Other)
  Sender: FDA-Public Use
  Company Number: B0361158A

PATIENT
  Age: 39 Year
  Sex: Female

DRUGS (4)
  1. PAROXETINE HCL [Suspect]
     Indication: DEPRESSION
     Route: 065
     Dates: start: 20000306
  2. PROZAC [Concomitant]
     Route: 065
     Dates: start: 20000228
  3. ESCITALOPRAM [Concomitant]
     Route: 065
     Dates: start: 20030914
  4. CITALOPRAM HYDROBROMIDE [Concomitant]
     Dates: start: 20071001

REACTIONS (8)
  - ANXIETY [None]
  - DISTURBANCE IN ATTENTION [None]
  - DRUG WITHDRAWAL SYNDROME [None]
  - HEADACHE [None]
  - HYPOAESTHESIA [None]
  - INSOMNIA [None]
  - PANIC REACTION [None]
  - TREMOR [None]
